FAERS Safety Report 8811204 (Version 1)
Quarter: 2012Q4

REPORT INFORMATION
  Report Type: Spontaneous
  Country: US (occurrence: None)
  Receive Date: 20120925
  Receipt Date: 20120925
  Transmission Date: 20130627
  Serious: Yes (Hospitalization, Disabling)
  Sender: FDA-Public Use
  Company Number: None

PATIENT
  Sex: Female
  Weight: 86.18 kg

DRUGS (1)
  1. METFORMIN [Suspect]
     Indication: DIABETES
     Dosage: Feb Feb.-

REACTIONS (2)
  - Myalgia [None]
  - Drug hypersensitivity [None]
